FAERS Safety Report 5194490-7 (Version None)
Quarter: 2006Q4

REPORT INFORMATION
  Report Type: 
  Country: None (occurrence: None)
  Receive Date: 20061226
  Receipt Date: 20061218
  Transmission Date: 20070319
  Serious: Yes (Hospitalization)
  Sender: FDA-Public Use
  Company Number: 2006002061

PATIENT
  Age: 72 Year
  Sex: Female

DRUGS (5)
  1. TARCEVA [Suspect]
     Indication: BRONCHIAL CARCINOMA
     Dosage: SEE IMAGE
     Route: 048
     Dates: start: 20060629, end: 20061009
  2. CYCLINE [Concomitant]
  3. DAFLON (DIOSMIN) [Concomitant]
  4. ACTONEL [Concomitant]
  5. OROCAL (CALCIUM CARBONATE) [Concomitant]

REACTIONS (2)
  - HEPATITIS [None]
  - SKIN REACTION [None]
